FAERS Safety Report 11379953 (Version 2)
Quarter: 2015Q4

REPORT INFORMATION
  Report Type: Spontaneous
  Country: US (occurrence: US)
  Receive Date: 20150814
  Receipt Date: 20151128
  Transmission Date: 20160304
  Serious: Yes (Hospitalization, Other)
  Sender: FDA-Public Use
  Company Number: US-SUN PHARMACEUTICAL INDUSTRIES LTD-2015US-101550

PATIENT
  Age: 43 Year
  Sex: Male
  Weight: 82 kg

DRUGS (7)
  1. VIAGRA [Suspect]
     Active Substance: SILDENAFIL CITRATE
     Indication: ERECTILE DYSFUNCTION
     Dosage: UNK, PRN
     Route: 048
  2. LYRICA [Suspect]
     Active Substance: PREGABALIN
     Indication: RESTLESS LEGS SYNDROME
  3. WELLBUTRIN [Concomitant]
     Active Substance: BUPROPION HYDROCHLORIDE
     Indication: DEPRESSION
     Dosage: 300 MG, QD
     Route: 048
  4. LYRICA [Suspect]
     Active Substance: PREGABALIN
     Indication: NERVE INJURY
     Dosage: 200 MG, TID
     Route: 048
     Dates: start: 2006
  5. LEXAPRO [Concomitant]
     Active Substance: ESCITALOPRAM OXALATE
     Indication: DEPRESSION
     Dosage: 20 MG, QD
     Route: 048
  6. BACTRIM DS [Suspect]
     Active Substance: SULFAMETHOXAZOLE\TRIMETHOPRIM
     Indication: BACTERIAL INFECTION
     Dosage: 1 DF, BID
     Route: 048
     Dates: start: 20150711, end: 20150713
  7. CELEBREX [Suspect]
     Active Substance: CELECOXIB
     Indication: ARTHRITIS
     Dosage: 100 MG, BID
     Route: 048
     Dates: start: 2015

REACTIONS (12)
  - Erythema [Unknown]
  - Staphylococcal infection [Unknown]
  - Nausea [Unknown]
  - Skin tightness [Unknown]
  - Product quality issue [None]
  - Wound secretion [Unknown]
  - Infection [Not Recovered/Not Resolved]
  - Wound infection staphylococcal [Recovering/Resolving]
  - Joint swelling [Recovering/Resolving]
  - Surgery [Unknown]
  - Drug ineffective [None]
  - Blister [Unknown]

NARRATIVE: CASE EVENT DATE: 20150710
